FAERS Safety Report 14307394 (Version 2)
Quarter: 2019Q2

REPORT INFORMATION
  Report Type: Spontaneous
  Country: US (occurrence: US)
  Receive Date: 20171220
  Receipt Date: 20190522
  Transmission Date: 20190711
  Serious: No
  Sender: FDA-Public Use
  Company Number: US-PFIZER INC-2017537338

PATIENT
  Age: 35 Year
  Sex: Male

DRUGS (2)
  1. GENOTROPIN [Suspect]
     Active Substance: SOMATROPIN
     Dosage: 0.3 MG, DAILY
  2. GENOTROPIN [Suspect]
     Active Substance: SOMATROPIN
     Dosage: 0.3 MG, DAILY (0.3MG 7 DAYS A WEEK)
     Dates: start: 20171021, end: 20190513

REACTIONS (4)
  - Headache [Unknown]
  - Muscle tightness [Unknown]
  - Neck pain [Unknown]
  - Dizziness [Unknown]

NARRATIVE: CASE EVENT DATE: 201711
